FAERS Safety Report 9975952 (Version 1)
Quarter: 2014Q1

REPORT INFORMATION
  Report Type: Spontaneous
  Country: SE (occurrence: SE)
  Receive Date: 20140306
  Receipt Date: 20140306
  Transmission Date: 20141002
  Serious: Yes (Other)
  Sender: FDA-Public Use
  Company Number: SE-GILEAD-2014-0096016

PATIENT
  Sex: Female

DRUGS (8)
  1. EVIPLERA [Suspect]
     Indication: HIV INFECTION
     Dosage: UNK
     Route: 065
     Dates: start: 201309
  2. LAMOTRIGIN [Concomitant]
     Indication: EPILEPSY
     Dosage: 100 MG, UNK
     Dates: start: 2013
  3. LAMOTRIGIN [Concomitant]
     Dosage: 2 MG, UNK
     Dates: start: 2013
  4. KEPPRA [Concomitant]
     Dosage: 750 MG, BID
     Dates: start: 2013
  5. ZOLPIDEM [Concomitant]
     Dosage: 10 MG, QD
     Dates: start: 2013
  6. MIRTAZAPIN [Concomitant]
     Dosage: UNK, QD
     Dates: start: 2013
  7. SEROQUEL [Concomitant]
     Dosage: 300 DF, QD
     Dates: start: 201309
  8. ATARAX                             /00058401/ [Concomitant]

REACTIONS (3)
  - Convulsion [Unknown]
  - Hallucinations, mixed [Unknown]
  - Mental disorder [Unknown]
